FAERS Safety Report 20660191 (Version 1)
Quarter: 2022Q1

REPORT INFORMATION
  Report Type: Spontaneous
  Country: US (occurrence: US)
  Receive Date: 20220331
  Receipt Date: 20220331
  Transmission Date: 20220423
  Serious: Yes (Hospitalization, Other)
  Sender: FDA-Public Use
  Company Number: US-GLAXOSMITHKLINE-US2022056619

PATIENT
  Age: 89 Year
  Sex: Female

DRUGS (1)
  1. ADVAIR DISKUS [Suspect]
     Active Substance: FLUTICASONE PROPIONATE\SALMETEROL XINAFOATE
     Indication: Asthma
     Dosage: 250/50MCG
     Dates: start: 199401

REACTIONS (7)
  - Gallbladder operation [Unknown]
  - Haemorrhoid operation [Unknown]
  - Biliary obstruction [Unknown]
  - Pain [Recovered/Resolved]
  - Feeling cold [Recovered/Resolved]
  - Balance disorder [Recovered/Resolved]
  - Gait inability [Recovered/Resolved]

NARRATIVE: CASE EVENT DATE: 20211005
